FAERS Safety Report 5784259-4 (Version None)
Quarter: 2008Q2

REPORT INFORMATION
  Report Type: 
  Country: None (occurrence: None)
  Receive Date: 20080620
  Receipt Date: 20080620
  Transmission Date: 20081010
  Serious: Yes (Life-Threatening, Hospitalization)
  Sender: FDA-Public Use
  Company Number: None

PATIENT
  Sex: Female
  Weight: 79.8331 kg

DRUGS (1)
  1. ACTAVIS TOTOWA DIGITEK [Suspect]
     Indication: HEART RATE INCREASED
     Dosage: 0.125 MG 1 DAILY 1 TABLET EVERY DAY
     Dates: start: 20080101, end: 20080116

REACTIONS (2)
  - HEART RATE DECREASED [None]
  - OVERDOSE [None]
